FAERS Safety Report 15551697 (Version 2)
Quarter: 2018Q4

REPORT INFORMATION
  Report Type: Spontaneous
  Country: JP (occurrence: JP)
  Receive Date: 20181025
  Receipt Date: 20181107
  Transmission Date: 20190205
  Serious: Yes (Other)
  Sender: FDA-Public Use
  Company Number: JP-IMPAX LABORATORIES, INC-2018-IPXL-03412

PATIENT
  Age: 64 Year
  Sex: Female

DRUGS (1)
  1. CABERGOLINE. [Suspect]
     Active Substance: CABERGOLINE
     Indication: PROLACTIN-PRODUCING PITUITARY TUMOUR
     Dosage: 0.25 MILLIGRAM
     Route: 065

REACTIONS (5)
  - Pituitary haemorrhage [Recovering/Resolving]
  - Pyrexia [Unknown]
  - Hypotension [Unknown]
  - Decreased appetite [Unknown]
  - Thrombocytopenia [Recovered/Resolved]
